FAERS Safety Report 7223864-5 (Version None)
Quarter: 2011Q1

REPORT INFORMATION
  Report Type: 
  Country: None (occurrence: None)
  Receive Date: 20110112
  Receipt Date: 20110105
  Transmission Date: 20110831
  Serious: Yes (Hospitalization, Other)
  Sender: FDA-Public Use
  Company Number: MX-ELI_LILLY_AND_COMPANY-MX201101001489

PATIENT
  Age: 43 Year
  Sex: Male
  Weight: 92 kg

DRUGS (2)
  1. BYETTA [Suspect]
     Indication: DIABETES MELLITUS
     Dosage: 10 UG, 2/D
     Route: 058
     Dates: start: 20100901
  2. METFORMIN [Concomitant]
     Dosage: 850 MG, DAILY (1/D)

REACTIONS (3)
  - VISION BLURRED [None]
  - BLOOD GLUCOSE INCREASED [None]
  - DRY MOUTH [None]
